FAERS Safety Report 13505255 (Version 3)
Quarter: 2017Q4

REPORT INFORMATION
  Report Type: Spontaneous
  Country: GB (occurrence: GB)
  Receive Date: 20170502
  Receipt Date: 20171005
  Transmission Date: 20180320
  Serious: Yes (Death, Hospitalization, Disabling)
  Sender: FDA-Public Use
  Company Number: GB-BAYER-2017-077891

PATIENT
  Age: 77 Year
  Sex: Male
  Weight: 70 kg

DRUGS (3)
  1. ASPIRIN. [Suspect]
     Active Substance: ASPIRIN
     Dosage: 75 MG, UNK
     Route: 048
     Dates: start: 20170322, end: 20170327
  2. TICAGRELOR. [Suspect]
     Active Substance: TICAGRELOR
     Dosage: 90 MG, BID
     Route: 048
     Dates: start: 20170322, end: 20170326
  3. DALTEPARIN [Suspect]
     Active Substance: DALTEPARIN
     Indication: THROMBOSIS PROPHYLAXIS
     Dosage: 2500 IU, QD
     Dates: start: 20170322, end: 20170326

REACTIONS (9)
  - Acute myocardial infarction [Unknown]
  - Chest pain [Unknown]
  - Subarachnoid haemorrhage [Not Recovered/Not Resolved]
  - Pulseless electrical activity [Unknown]
  - Acute respiratory distress syndrome [Fatal]
  - Anxiety [Unknown]
  - Ventricular fibrillation [Unknown]
  - Lower respiratory tract infection [Unknown]
  - Hypoxic-ischaemic encephalopathy [Unknown]

NARRATIVE: CASE EVENT DATE: 20170327
